FAERS Safety Report 4778829-X (Version None)
Quarter: 2005Q3

REPORT INFORMATION
  Report Type: 
  Country: None (occurrence: None)
  Receive Date: 20050923
  Receipt Date: 20050905
  Transmission Date: 20060218
  Serious: Yes (Other)
  Sender: FDA-Public Use
  Company Number: 2005129911

PATIENT
  Sex: 0

DRUGS (4)
  1. LYRICA [Suspect]
     Indication: PRURITUS
     Dosage: 225 MG (75 MG, 3 IN 1 D), ORAL
     Route: 048
  2. MICARDIS [Concomitant]
  3. PHYSIOTENS (MOXONIDINE) [Concomitant]
  4. CLOPIDOGREL BISULFATE [Concomitant]

REACTIONS (2)
  - BUNDLE BRANCH BLOCK LEFT [None]
  - HYPOTENSION [None]
